FAERS Safety Report 7215272-8 (Version None)
Quarter: 2011Q1

REPORT INFORMATION
  Report Type: 
  Country: None (occurrence: None)
  Receive Date: 20110107
  Receipt Date: 20110104
  Transmission Date: 20110831
  Serious: Yes (Death)
  Sender: FDA-Public Use
  Company Number: US-KINGPHARMUSA00001-K201100009

PATIENT
  Age: 76 Year
  Sex: Female

DRUGS (9)
  1. ACETAMINOPHEN AND HYDROCODONE BITARTRATE [Suspect]
     Indication: COMPLETED SUICIDE
     Route: 048
  2. METHADONE [Suspect]
     Indication: COMPLETED SUICIDE
     Route: 048
  3. AMPHETAMINE AND DEXTROAMPHETAMINE SALTS [Suspect]
     Indication: COMPLETED SUICIDE
     Route: 048
  4. LEVOXYL [Suspect]
     Indication: COMPLETED SUICIDE
     Route: 048
  5. ALPRAZOLAM [Suspect]
     Indication: COMPLETED SUICIDE
     Route: 048
  6. BETA BLOCKING AGENTS [Suspect]
     Indication: COMPLETED SUICIDE
     Route: 048
  7. FUROSEMIDE [Suspect]
     Indication: COMPLETED SUICIDE
     Route: 048
  8. PANTOPRAZOLE SODIUM [Suspect]
     Indication: COMPLETED SUICIDE
     Route: 048
  9. SIMVASTATIN [Suspect]
     Indication: COMPLETED SUICIDE
     Route: 048

REACTIONS (1)
  - COMPLETED SUICIDE [None]
